FAERS Safety Report 23376483 (Version 1)
Quarter: 2024Q1

REPORT INFORMATION
  Report Type: Other
  Country: US (occurrence: None)
  Receive Date: 20240108
  Receipt Date: 20240108
  Transmission Date: 20240409
  Serious: Yes (Other)
  Sender: FDA-Public Use
  Company Number: US-ROCHE-3484479

PATIENT

DRUGS (6)
  1. COBIMETINIB [Suspect]
     Active Substance: COBIMETINIB
     Indication: Malignant melanoma
     Route: 065
  2. VEMURAFENIB [Suspect]
     Active Substance: VEMURAFENIB
     Indication: Malignant melanoma
     Route: 065
  3. DABRAFENIB [Suspect]
     Active Substance: DABRAFENIB
     Indication: Malignant melanoma
     Route: 065
  4. TRAMETINIB [Suspect]
     Active Substance: TRAMETINIB
     Indication: Malignant melanoma
     Route: 065
  5. ENCORAFENIB [Suspect]
     Active Substance: ENCORAFENIB
     Indication: Malignant melanoma
     Route: 065
  6. BINIMETINIB [Suspect]
     Active Substance: BINIMETINIB
     Indication: Malignant melanoma
     Route: 065

REACTIONS (35)
  - Neuropathy peripheral [Unknown]
  - Ejection fraction decreased [Recovered/Resolved]
  - Retinal detachment [Recovered/Resolved]
  - Uveitis [Recovered/Resolved]
  - Iritis [Recovered/Resolved]
  - Ventricular hypertrophy [Recovered/Resolved]
  - Pyrexia [Unknown]
  - Fatigue [Unknown]
  - Gingivitis [Unknown]
  - Bone loss [Unknown]
  - Pneumonitis [Unknown]
  - Colitis [Unknown]
  - Diarrhoea [Unknown]
  - Hepatitis [Unknown]
  - Arthralgia [Unknown]
  - Palmar-plantar erythrodysaesthesia syndrome [Unknown]
  - Photosensitivity reaction [Unknown]
  - Hyperkeratosis [Unknown]
  - Panniculitis [Unknown]
  - Electrocardiogram QT prolonged [Recovered/Resolved]
  - Arrhythmia [Recovered/Resolved]
  - Left ventricular dysfunction [Recovered/Resolved]
  - Macular oedema [Recovered/Resolved]
  - Retinopathy [Recovered/Resolved]
  - Atrial fibrillation [Recovered/Resolved]
  - Sinus tachycardia [Recovered/Resolved]
  - Blepharitis [Recovered/Resolved]
  - Vision blurred [Recovered/Resolved]
  - Keratitis [Recovered/Resolved]
  - Conjunctivitis [Recovered/Resolved]
  - Eye pain [Recovered/Resolved]
  - Pterygium [Recovered/Resolved]
  - Retinal oedema [Recovered/Resolved]
  - Vitreous detachment [Recovered/Resolved]
  - Iridocyclitis [Not Recovered/Not Resolved]
